FAERS Safety Report 6983249-3 (Version None)
Quarter: 2010Q3

REPORT INFORMATION
  Report Type: 
  Country: None (occurrence: None)
  Receive Date: 20100914
  Receipt Date: 20100719
  Transmission Date: 20110219
  Serious: No
  Sender: FDA-Public Use
  Company Number: US-PFIZER INC-2010091017

PATIENT
  Sex: Male
  Weight: 68.027 kg

DRUGS (3)
  1. LYRICA [Suspect]
     Indication: FIBROMYALGIA
     Dosage: UNK
     Route: 048
     Dates: end: 20100715
  2. IBUPROFEN [Concomitant]
     Dosage: UNK
     Route: 048
  3. TYLENOL [Concomitant]
     Dosage: UNK
     Route: 048

REACTIONS (1)
  - DRUG SCREEN FALSE POSITIVE [None]
